FAERS Safety Report 6583852-9 (Version None)
Quarter: 2010Q1

REPORT INFORMATION
  Report Type: 
  Country: None (occurrence: None)
  Receive Date: 20100213
  Receipt Date: 20100213
  Transmission Date: 20100710
  Serious: Yes (Other)
  Sender: FDA-Public Use
  Company Number: None

PATIENT
  Age: 67 Year
  Sex: Female
  Weight: 51.2565 kg

DRUGS (1)
  1. MIACALCIN [Suspect]
     Indication: OSTEOPOROSIS
     Dosage: 200 IU PER ACTUATION DAILY NASAL
     Route: 045
     Dates: start: 20060114, end: 20100114

REACTIONS (2)
  - ERYTHEMA [None]
  - RHINORRHOEA [None]
